FAERS Safety Report 22023454 (Version 3)
Quarter: 2023Q2

REPORT INFORMATION
  Report Type: Spontaneous
  Country: US (occurrence: None)
  Receive Date: 20230223
  Receipt Date: 20230418
  Transmission Date: 20230722
  Serious: No
  Sender: FDA-Public Use
  Company Number: 2023A038715

PATIENT
  Age: 57 Year
  Sex: Male
  Weight: 85.3 kg

DRUGS (3)
  1. BREZTRI [Suspect]
     Active Substance: BUDESONIDE\FORMOTEROL\GLYCOPYRROLATE
     Indication: Chronic obstructive pulmonary disease
     Dosage: 160/9/4.8MCG, 2 PUFFS, 2 TIMES A DAY
     Route: 055
     Dates: start: 202212
  2. SYMBICORT [Suspect]
     Active Substance: BUDESONIDE\FORMOTEROL FUMARATE DIHYDRATE
     Indication: Chronic obstructive pulmonary disease
     Dosage: 160/4.5 MCG, 2 PUFFS, 2 TIMES A DAY
     Route: 055
  3. VENTOLIN [Concomitant]
     Active Substance: ALBUTEROL SULFATE
     Dosage: AS NEEDED

REACTIONS (15)
  - Dyspnoea [Unknown]
  - Pericardial effusion [Recovered/Resolved]
  - Gout [Recovered/Resolved]
  - Peripheral swelling [Recovered/Resolved]
  - Viral infection [Recovered/Resolved]
  - Hypoacusis [Not Recovered/Not Resolved]
  - Body height decreased [Unknown]
  - Weight increased [Unknown]
  - Device malfunction [Unknown]
  - Product communication issue [Unknown]
  - Drug dose omission by device [Unknown]
  - Incorrect dose administered by device [Unknown]
  - Intentional device use issue [Unknown]
  - Wrong technique in device usage process [Unknown]
  - Device use issue [Unknown]

NARRATIVE: CASE EVENT DATE: 20090101
